FAERS Safety Report 8299797-2 (Version None)
Quarter: 2012Q2

REPORT INFORMATION
  Report Type: 
  Country: None (occurrence: None)
  Receive Date: 20120419
  Receipt Date: 20120419
  Transmission Date: 20120825
  Serious: Yes (Hospitalization)
  Sender: FDA-Public Use
  Company Number: None

PATIENT
  Age: 28 Year
  Sex: Female

DRUGS (4)
  1. CLONAZEPAM [Concomitant]
     Route: 048
  2. TRAMADOL HYDROCHLORIDE [Suspect]
     Indication: BACK PAIN
     Dosage: 600 MG
     Route: 048
     Dates: start: 20110430, end: 20110717
  3. NORTRIPLLINE [Concomitant]
     Route: 048
  4. AMBIEN [Concomitant]
     Route: 048

REACTIONS (3)
  - PARAESTHESIA [None]
  - FALL [None]
  - NAUSEA [None]
